FAERS Safety Report 7654098-8 (Version None)
Quarter: 2011Q3

REPORT INFORMATION
  Report Type: 
  Country: None (occurrence: None)
  Receive Date: 20110803
  Receipt Date: 20110725
  Transmission Date: 20111222
  Serious: Yes (Other)
  Sender: FDA-Public Use
  Company Number: PHHY2011IT60835

PATIENT
  Sex: Female

DRUGS (3)
  1. ISOPTIN [Concomitant]
     Indication: TACHYCARDIA
     Dosage: UNK UKN, UNK
  2. TAPAZOLE [Concomitant]
     Indication: TOXIC NODULAR GOITRE
     Dosage: 5 MG, UNK
     Route: 048
  3. VOLTADVANCE [Suspect]
     Dosage: 25 MG, UNK
     Route: 048
     Dates: start: 20110521, end: 20110521

REACTIONS (3)
  - SUFFOCATION FEELING [None]
  - HYPERAEMIA [None]
  - OEDEMA [None]
